FAERS Safety Report 9245846 (Version 2)
Quarter: 2013Q2

REPORT INFORMATION
  Report Type: Spontaneous
  Country: IE (occurrence: IE)
  Receive Date: 20130422
  Receipt Date: 20130502
  Transmission Date: 20140414
  Serious: Yes (Death)
  Sender: FDA-Public Use
  Company Number: IE-UCBSA-079304

PATIENT
  Sex: Male

DRUGS (2)
  1. KEPPRA [Suspect]
     Dosage: 100 MG/ML
     Route: 048
  2. KEPPRA [Suspect]
     Route: 048

REACTIONS (2)
  - Death [Fatal]
  - Dysphagia [Unknown]
